FAERS Safety Report 26047855 (Version 1)
Quarter: 2025Q4

REPORT INFORMATION
  Report Type: Spontaneous
  Country: TW (occurrence: TW)
  Receive Date: 20251114
  Receipt Date: 20251114
  Transmission Date: 20260118
  Serious: Yes (Hospitalization)
  Sender: FRESENIUS KABI
  Company Number: TW-FreseniusKabi-FK202515249

PATIENT
  Age: 70 Year
  Sex: Male
  Weight: 58.6 kg

DRUGS (3)
  1. CISPLATIN [Suspect]
     Active Substance: CISPLATIN
     Indication: Chemotherapy
     Dosage: FREQUENCY: ONCE?FOA: INJECTION?46.2 ML ADMINISTERED (383.8 ML REMAINING)
     Route: 041
     Dates: start: 20251102, end: 20251102
  2. KEYTRUDA [Concomitant]
     Active Substance: PEMBROLIZUMAB
     Indication: Chemotherapy
     Dosage: FOA: INJECTION?ROA: INTRAVENOUS DRIP?DOSAGE: 200MG/ONCE
     Route: 041
     Dates: start: 20251101, end: 20251101
  3. ALIMTA [Concomitant]
     Active Substance: PEMETREXED DISODIUM
     Indication: Chemotherapy
     Dosage: FOA: INJECTION?ROA: INTRAVENOUS DRIP?DOSAGE: 800MG/ONCE
     Route: 041
     Dates: start: 20251101, end: 20251101

REACTIONS (1)
  - Anaphylactic shock [Recovered/Resolved]

NARRATIVE: CASE EVENT DATE: 20251102
